FAERS Safety Report 5325694-8 (Version None)
Quarter: 2007Q2

REPORT INFORMATION
  Report Type: 
  Country: None (occurrence: None)
  Receive Date: 20070509
  Receipt Date: 20070507
  Transmission Date: 20071010
  Serious: Yes (Hospitalization)
  Sender: FDA-Public Use
  Company Number: JPI-P-001018

PATIENT
  Age: 46 Year
  Sex: Female
  Weight: 73.9363 kg

DRUGS (3)
  1. XYREM [Suspect]
     Indication: NARCOLEPSY
     Dosage: SEE IMAGE
     Route: 048
     Dates: end: 20070401
  2. XYREM [Suspect]
     Indication: NARCOLEPSY
     Dosage: SEE IMAGE
     Route: 048
     Dates: start: 20060701
  3. DEPAKOTE SPRINKLES (VALPROATE SEMISODIUM) [Concomitant]

REACTIONS (4)
  - DIABETES MELLITUS [None]
  - FALL [None]
  - NOCTURIA [None]
  - POLLAKIURIA [None]
